FAERS Safety Report 24815282 (Version 1)
Quarter: 2025Q1

REPORT INFORMATION
  Report Type: Spontaneous
  Country: US (occurrence: US)
  Receive Date: 20250107
  Receipt Date: 20250107
  Transmission Date: 20250408
  Serious: No
  Sender: FRESENIUS KABI
  Company Number: US-FreseniusKabi-FK202419427

PATIENT
  Age: 76 Year
  Sex: Male

DRUGS (3)
  1. DILAUDID [Suspect]
     Active Substance: HYDROMORPHONE HYDROCHLORIDE
     Indication: Neuropathy peripheral
     Route: 037
  2. BUPIVACAINE [Suspect]
     Active Substance: BUPIVACAINE
     Indication: Neuropathy peripheral
     Route: 037
  3. ZICONOTIDE ACETATE [Suspect]
     Active Substance: ZICONOTIDE ACETATE
     Indication: Neuropathy peripheral
     Dosage: 100 MICROGRAM/ML
     Route: 037

REACTIONS (3)
  - Off label use [Unknown]
  - Cognitive disorder [Unknown]
  - Sedation [Unknown]
